FAERS Safety Report 18265042 (Version 1)
Quarter: 2020Q3

REPORT INFORMATION
  Report Type: Spontaneous
  Country: US (occurrence: US)
  Receive Date: 20200914
  Receipt Date: 20200914
  Transmission Date: 20201103
  Serious: Yes (Other)
  Sender: FDA-Public Use
  Company Number: US-AMNEAL PHARMACEUTICALS-2020-AMRX-02809

PATIENT
  Age: 5 Day
  Sex: Female

DRUGS (2)
  1. VENLAFAXINE HYDROCHLORIDE. [Suspect]
     Active Substance: VENLAFAXINE HYDROCHLORIDE
     Indication: PRODUCT USED FOR UNKNOWN INDICATION
     Dosage: 112.5 MILLIGRAM, DAILY
     Route: 064
  2. VENLAFAXINE HYDROCHLORIDE. [Suspect]
     Active Substance: VENLAFAXINE HYDROCHLORIDE
     Dosage: 150 MILLIGRAM, DAILY INCREASED 2 MONTHS PRIOR DELIVERY
     Route: 064

REACTIONS (3)
  - Foetal exposure during pregnancy [Unknown]
  - Toxic encephalopathy [Recovered/Resolved]
  - Drug withdrawal syndrome neonatal [Recovered/Resolved]
